FAERS Safety Report 26091994 (Version 1)
Quarter: 2025Q4

REPORT INFORMATION
  Report Type: Spontaneous
  Country: US (occurrence: US)
  Receive Date: 20251126
  Receipt Date: 20251126
  Transmission Date: 20260118
  Serious: Yes (Hospitalization, Other)
  Sender: Onesource Specialty Pharma
  Company Number: US-STRIDES ARCOLAB LIMITED-2025OS001285

PATIENT
  Age: 5 Year
  Sex: Female

DRUGS (5)
  1. ACETYLCYSTEINE [Suspect]
     Active Substance: ACETYLCYSTEINE
     Indication: Accidental overdose
     Dosage: UNK
     Route: 065
  2. FOMEPIZOLE [Suspect]
     Active Substance: FOMEPIZOLE
     Indication: Accidental overdose
     Dosage: UNK, RECEIVED ONE DOSE
     Route: 065
  3. VITAMIN K [Suspect]
     Active Substance: PHYTONADIONE
     Indication: Accidental overdose
     Dosage: UNK
     Route: 065
  4. DEXTROSE [Suspect]
     Active Substance: DEXTROSE MONOHYDRATE
     Indication: Accidental overdose
     Dosage: UNK
     Route: 065
  5. ACETAMINOPHEN [Concomitant]
     Active Substance: ACETAMINOPHEN
     Indication: Product used for unknown indication
     Dosage: UNKNOWN QUANTITY
     Route: 065

REACTIONS (6)
  - Encephalopathy [None]
  - Coagulopathy [None]
  - Intracranial pressure increased [None]
  - Brain oedema [None]
  - Disease progression [None]
  - Drug ineffective [Unknown]
